FAERS Safety Report 7105666-3 (Version None)
Quarter: 2010Q4

REPORT INFORMATION
  Report Type: 
  Country: None (occurrence: None)
  Receive Date: 20101116
  Receipt Date: 20101111
  Transmission Date: 20110411
  Serious: Yes (Hospitalization)
  Sender: FDA-Public Use
  Company Number: GB-TEVA-255178ISR

PATIENT
  Sex: Male

DRUGS (8)
  1. PREDNISOLONE [Suspect]
     Indication: PROSTATE CANCER METASTATIC
     Dosage: DOSE INTERRUPTION
     Route: 048
     Dates: start: 20091222
  2. ABIRATERONE ACETATE- BLINDED [Suspect]
     Indication: PROSTATE CANCER METASTATIC
     Dosage: DOSE INTERRUPTION
     Route: 048
     Dates: start: 20091222
  3. TIOTROPIUM [Concomitant]
     Dates: start: 19940101
  4. LANSOPRAZOLE [Concomitant]
     Indication: GASTROINTESTINAL DISORDER THERAPY
     Dates: start: 20080101
  5. BUDESONIDE [Concomitant]
     Indication: CHRONIC OBSTRUCTIVE PULMONARY DISEASE
     Route: 055
     Dates: start: 19940101
  6. PARACETAMOL [Concomitant]
     Indication: ARTHRALGIA
     Route: 048
     Dates: start: 20091210
  7. PARACETAMOL [Concomitant]
     Indication: PROSTATE CANCER
     Route: 030
     Dates: start: 20091222
  8. PARACETAMOL [Concomitant]
     Indication: HORMONE THERAPY

REACTIONS (11)
  - ABDOMINAL PAIN LOWER [None]
  - BLOOD CREATININE INCREASED [None]
  - BRADYPHRENIA [None]
  - FUNGAL OESOPHAGITIS [None]
  - GASTRITIS HAEMORRHAGIC [None]
  - HEADACHE [None]
  - PURULENT DISCHARGE [None]
  - STAPHYLOCOCCAL INFECTION [None]
  - THROMBOPHLEBITIS [None]
  - VESSEL PUNCTURE SITE REACTION [None]
  - VOMITING [None]
